FAERS Safety Report 7597295-2 (Version None)
Quarter: 2011Q3

REPORT INFORMATION
  Report Type: 
  Country: None (occurrence: None)
  Receive Date: 20110708
  Receipt Date: 20110323
  Transmission Date: 20111222
  Serious: No
  Sender: FDA-Public Use
  Company Number: US-GLAXOSMITHKLINE-A0919553A

PATIENT
  Sex: Female

DRUGS (11)
  1. NEXIUM [Concomitant]
  2. ZOLOFT [Concomitant]
  3. ACYCLOVIR [Concomitant]
  4. FLOVENT [Suspect]
     Indication: OBSTRUCTIVE AIRWAYS DISORDER
     Route: 055
  5. UNKNOWN MEDICATION [Concomitant]
  6. PREDNISONE [Concomitant]
  7. DOXYCYCLINE HYCLATE [Concomitant]
  8. HYOSCYAMINE SULFATE [Concomitant]
  9. PROVENTIL [Concomitant]
  10. LYRICA [Concomitant]
  11. ENULOSE [Concomitant]

REACTIONS (1)
  - THROAT IRRITATION [None]
